FAERS Safety Report 5932778-X (Version None)
Quarter: 2008Q4

REPORT INFORMATION
  Report Type: 
  Country: None (occurrence: None)
  Receive Date: 20081028
  Receipt Date: 20081024
  Transmission Date: 20090506
  Serious: Yes (Other)
  Sender: FDA-Public Use
  Company Number: B0393044B

PATIENT
  Age: 61 Year
  Sex: Male

DRUGS (5)
  1. ROSIGLITAZONE [Suspect]
     Dosage: 8MG PER DAY
     Route: 048
     Dates: start: 20020211
  2. GLUCOPHAGE [Concomitant]
     Dosage: 500MG TWICE PER DAY
     Route: 048
     Dates: start: 20001110
  3. ESIDRIX [Concomitant]
     Dosage: 25MG PER DAY
     Dates: start: 20010523
  4. ATACAND [Concomitant]
     Dosage: 16MG PER DAY
     Dates: start: 19980408
  5. PROSCAR [Concomitant]
     Dosage: 5MG PER DAY
     Dates: start: 20080211

REACTIONS (1)
  - PROSTATE CANCER [None]
